FAERS Safety Report 21946627 (Version 1)
Quarter: 2023Q1

REPORT INFORMATION
  Report Type: Spontaneous
  Country: US (occurrence: None)
  Receive Date: 20230202
  Receipt Date: 20230202
  Transmission Date: 20230418
  Serious: Yes (Other)
  Sender: FDA-Public Use
  Company Number: None

PATIENT
  Age: 73 Year
  Sex: Male
  Weight: 94.95 kg

DRUGS (5)
  1. VANCOMYCIN [Suspect]
     Active Substance: VANCOMYCIN
     Indication: Abdominal abscess
     Dosage: FREQUENCY : TWICE A DAY;?
     Route: 042
     Dates: start: 20230112, end: 20230201
  2. PIPERACILLIN SODIUM\TAZOBACTAM SODIUM [Suspect]
     Active Substance: PIPERACILLIN SODIUM\TAZOBACTAM SODIUM
     Indication: Abdominal abscess
     Dosage: FREQUENCY : DAILY;?
     Route: 042
     Dates: start: 20230112
  3. VANCOMYCIN [Concomitant]
     Active Substance: VANCOMYCIN
     Dates: start: 20230112, end: 20230201
  4. PIPERACILLIN SODIUM\TAZOBACTAM SODIUM [Concomitant]
     Active Substance: PIPERACILLIN SODIUM\TAZOBACTAM SODIUM
     Dates: start: 20230112
  5. LASIX [Concomitant]
     Active Substance: FUROSEMIDE
     Dates: start: 20230127

REACTIONS (3)
  - Blood creatinine increased [None]
  - Therapy cessation [None]
  - Antibiotic level above therapeutic [None]

NARRATIVE: CASE EVENT DATE: 20230201
